FAERS Safety Report 20832523 (Version 1)
Quarter: 2022Q2

REPORT INFORMATION
  Report Type: Spontaneous
  Country: US (occurrence: None)
  Receive Date: 20220513
  Receipt Date: 20220513
  Transmission Date: 20220721
  Serious: No
  Sender: FDA-Public Use
  Company Number: None

PATIENT
  Age: 74 Year
  Sex: Female

DRUGS (2)
  1. TIXAGEVIMAB [Suspect]
     Active Substance: TIXAGEVIMAB
     Dates: start: 20220427, end: 20220427
  2. CILGAVIMAB [Suspect]
     Active Substance: CILGAVIMAB
     Dates: start: 20220427, end: 20220427

REACTIONS (2)
  - Gout [None]
  - Injection related reaction [None]

NARRATIVE: CASE EVENT DATE: 20220427
